FAERS Safety Report 10484821 (Version 2)
Quarter: 2014Q3

REPORT INFORMATION
  Report Type: Report from Study
  Country: BR (occurrence: BR)
  Receive Date: 20140930
  Receipt Date: 20140930
  Transmission Date: 20150326
  Serious: Yes (Hospitalization, Other)
  Sender: FDA-Public Use
  Company Number: BR-BRISTOL-MYERS SQUIBB COMPANY-21386230

PATIENT
  Age: 54 Year
  Sex: Female
  Weight: 87 kg

DRUGS (5)
  1. OMEPRAZOLE. [Concomitant]
     Active Substance: OMEPRAZOLE
     Indication: PROPHYLAXIS
  2. SERTRALINE [Concomitant]
     Active Substance: SERTRALINE HYDROCHLORIDE
     Indication: DEPRESSION
  3. ERBITUX [Suspect]
     Active Substance: CETUXIMAB
     Indication: COLORECTAL CANCER METASTATIC
     Dosage: ONGOING?INT ON 03SEP2014?05AUG14?LAST INF ON 17SEP2014
     Route: 042
     Dates: start: 201406
  4. AMLODIPINE [Concomitant]
     Active Substance: AMLODIPINE BESYLATE
     Indication: HYPERTENSION
  5. AMLODIPINE [Concomitant]
     Active Substance: AMLODIPINE BESYLATE
     Indication: BLOOD PRESSURE

REACTIONS (15)
  - Back pain [Recovered/Resolved]
  - Anal haemorrhage [Unknown]
  - Dry skin [Not Recovered/Not Resolved]
  - Tachycardia [Recovered/Resolved]
  - Skin wound [Not Recovered/Not Resolved]
  - Haematuria [Unknown]
  - Decreased appetite [Not Recovered/Not Resolved]
  - Pyrexia [Recovered/Resolved]
  - Acne [Not Recovered/Not Resolved]
  - Nail bed inflammation [Unknown]
  - Laryngeal oedema [Unknown]
  - Diarrhoea [Recovered/Resolved]
  - Sensitivity of teeth [Recovering/Resolving]
  - Pain [Recovered/Resolved]
  - Nail disorder [Unknown]

NARRATIVE: CASE EVENT DATE: 201406
